FAERS Safety Report 16985041 (Version 1)
Quarter: 2019Q4

REPORT INFORMATION
  Report Type: Spontaneous
  Country: DE (occurrence: DE)
  Receive Date: 20191101
  Receipt Date: 20191101
  Transmission Date: 20200122
  Serious: Yes (Other)
  Sender: FDA-Public Use
  Company Number: DE-PFIZER INC-2019466799

PATIENT
  Age: 69 Year
  Sex: Female

DRUGS (3)
  1. METHOTREXATE SODIUM. [Suspect]
     Active Substance: METHOTREXATE SODIUM
  2. PREDNISOLONE. [Suspect]
     Active Substance: PREDNISOLONE
  3. RITUXIMAB. [Suspect]
     Active Substance: RITUXIMAB

REACTIONS (3)
  - Inflammatory marker increased [Unknown]
  - Drug ineffective [Unknown]
  - Monoclonal gammopathy [Unknown]
